FAERS Safety Report 14950719 (Version 1)
Quarter: 2018Q2

REPORT INFORMATION
  Report Type: Spontaneous
  Country: JP (occurrence: JP)
  Receive Date: 20180530
  Receipt Date: 20180530
  Transmission Date: 20180711
  Serious: Yes (Other)
  Sender: FDA-Public Use
  Company Number: JP-ACCORD-063662

PATIENT
  Age: 56 Year
  Sex: Female

DRUGS (3)
  1. CISPLATIN. [Suspect]
     Active Substance: CISPLATIN
     Indication: GINGIVAL CANCER
  2. TAXOTERE [Suspect]
     Active Substance: DOCETAXEL
     Indication: GINGIVAL CANCER
  3. FLUOROURACIL. [Suspect]
     Active Substance: FLUOROURACIL
     Indication: GINGIVAL CANCER

REACTIONS (1)
  - Leukopenia [Unknown]
